FAERS Safety Report 11209223 (Version 1)
Quarter: 2015Q2

REPORT INFORMATION
  Report Type: Spontaneous
  Country: US (occurrence: US)
  Receive Date: 20150622
  Receipt Date: 20150622
  Transmission Date: 20150821
  Serious: Yes (Hospitalization)
  Sender: FDA-Public Use
  Company Number: US-MPIJNJ-2011-06036

PATIENT
  Age: 80 Year
  Sex: Male
  Weight: 87.62 kg

DRUGS (3)
  1. VELCADE [Suspect]
     Active Substance: BORTEZOMIB
     Indication: PLASMA CELL MYELOMA
     Dosage: UNK
     Route: 042
     Dates: start: 20110621
  2. VELCADE [Suspect]
     Active Substance: BORTEZOMIB
     Dosage: 1.46 MG, CYCLIC
     Route: 042
     Dates: start: 20110927
  3. VELCADE [Suspect]
     Active Substance: BORTEZOMIB
     Dosage: 0.7 MG/M2, CYCLIC
     Route: 042
     Dates: start: 20110909

REACTIONS (4)
  - Hypotension [Recovered/Resolved]
  - Spinal cord compression [Recovered/Resolved]
  - Dehydration [Recovered/Resolved]
  - Asthenia [Recovered/Resolved]

NARRATIVE: CASE EVENT DATE: 20110914
